FAERS Safety Report 14327042 (Version 2)
Quarter: 2018Q2

REPORT INFORMATION
  Report Type: Report from Study
  Country: JP (occurrence: JP)
  Receive Date: 20171227
  Receipt Date: 20180420
  Transmission Date: 20180711
  Serious: Yes (Death, Other)
  Sender: FDA-Public Use
  Company Number: JP-009507513-1712JPN002073J

PATIENT
  Sex: Male
  Weight: 58 kg

DRUGS (12)
  1. ETOPOSIDE. [Concomitant]
     Active Substance: ETOPOSIDE
     Dosage: 170 MG, UNK
     Route: 051
     Dates: start: 20171011, end: 20171031
  2. UROMITEXAN [Concomitant]
     Active Substance: MESNA
     Dosage: 600 MG, UNK
     Route: 051
     Dates: start: 20171011, end: 20171031
  3. PEGINTRON [Suspect]
     Active Substance: PEGINTERFERON ALFA-2B
     Dosage: 1.5 MICROGRAM PER KILOGRAM, EVERY WEEK
     Route: 058
     Dates: start: 20170911, end: 20170918
  4. CARBOPLATIN. [Concomitant]
     Active Substance: CARBOPLATIN
     Indication: LANGERHANS^ CELL HISTIOCYTOSIS
     Dosage: 150 MG, UNK
     Route: 051
     Dates: start: 20170913, end: 20171010
  5. DOXORUBICIN HYDROCHLORIDE. [Concomitant]
     Active Substance: DOXORUBICIN HYDROCHLORIDE
     Indication: LANGERHANS^ CELL HISTIOCYTOSIS
     Dosage: 85 MG, UNK
     Route: 051
     Dates: start: 20170913, end: 20171010
  6. IFOMIDE [Concomitant]
     Active Substance: IFOSFAMIDE
     Dosage: 2.5 G, UNK
     Route: 051
     Dates: start: 20171011, end: 20171031
  7. ETOPOSIDE. [Concomitant]
     Active Substance: ETOPOSIDE
     Indication: LANGERHANS^ CELL HISTIOCYTOSIS
     Dosage: 70 MG, UNK
     Route: 051
     Dates: start: 20170725, end: 20170821
  8. ENDOXAN [Concomitant]
     Active Substance: CYCLOPHOSPHAMIDE
     Indication: LANGERHANS^ CELL HISTIOCYTOSIS
     Dosage: 1 G, UNK
     Route: 051
     Dates: start: 20170913, end: 20171010
  9. PEGINTRON [Suspect]
     Active Substance: PEGINTERFERON ALFA-2B
     Dosage: 4.5 MICROGRAM PER KILOGRAM, EVERY WEEK
     Route: 058
     Dates: start: 20171016, end: 20171030
  10. PEGINTRON [Suspect]
     Active Substance: PEGINTERFERON ALFA-2B
     Dosage: 3 MICROGRAM PER KILOGRAM, EVERY WEEK
     Route: 058
     Dates: start: 20170925, end: 20170925
  11. ONCOVIN [Concomitant]
     Active Substance: VINCRISTINE SULFATE
     Indication: LANGERHANS^ CELL HISTIOCYTOSIS
     Dosage: 2 MG, UNK
     Route: 051
     Dates: start: 20170913, end: 20171010
  12. PEGINTRON [Suspect]
     Active Substance: PEGINTERFERON ALFA-2B
     Indication: METASTATIC MALIGNANT MELANOMA
     Dosage: 6 MICROGRAM PER KILOGRAM, EVERY WEEK
     Route: 058
     Dates: start: 20170725, end: 20170808

REACTIONS (4)
  - General physical health deterioration [Fatal]
  - Metastatic malignant melanoma [Fatal]
  - Pyrexia [Unknown]
  - Depressive symptom [Recovered/Resolved]

NARRATIVE: CASE EVENT DATE: 2017
